FAERS Safety Report 7040288 (Version 3)
Quarter: 2012Q4

REPORT INFORMATION
  Report Type: Report from Study
  Country: US (occurrence: US)
  Receive Date: 20090702
  Receipt Date: 20121019
  Transmission Date: 20130627
  Serious: Yes (Hospitalization)
  Sender: FDA-Public Use
  Company Number: US-JNJFOC-20090700235

PATIENT
  Age: 12 Year
  Sex: Female
  Weight: 73.6 kg

DRUGS (10)
  1. INFLIXIMAB [Suspect]
     Indication: INFLAMMATORY BOWEL DISEASE
     Route: 042
  2. FERROUS SULFATE [Concomitant]
  3. 5-AMINOSALICYLIC ACID [Concomitant]
     Route: 048
  4. MULTIPLE VITAMIN [Concomitant]
  5. ZINC SULFATE [Concomitant]
  6. OMEGA 3 FATTY ACIDS [Concomitant]
  7. TRIAMCINOLONE ACETONIDE [Concomitant]
  8. NYSTATIN [Concomitant]
  9. KETOCONAZOLE [Concomitant]
  10. LEVAQUIN [Concomitant]

REACTIONS (1)
  - Perirectal abscess [Recovered/Resolved]
